FAERS Safety Report 9817927 (Version 1)
Quarter: 2013Q4

REPORT INFORMATION
  Report Type: Spontaneous
  Country: US (occurrence: None)
  Receive Date: 20131223
  Receipt Date: 20131223
  Transmission Date: 20140711
  Serious: No
  Sender: FDA-Public Use
  Company Number: 220070

PATIENT
  Age: 64 Year
  Sex: Male

DRUGS (7)
  1. PICATO [Suspect]
     Indication: ACTINIC KERATOSIS
     Dosage: 1 IN 1 D
     Route: 061
     Dates: start: 20130106, end: 20130107
  2. LISINOPRIL (LISINOPRIL) [Concomitant]
  3. METOPROLOL ER(METOPROLOL) [Concomitant]
  4. METFORMIN [Concomitant]
  5. QUESTOR (COLESTYRAMINE) [Concomitant]
  6. JENUVIA (SITAGLIPTIN PHOSPHATE) [Concomitant]
  7. LEVEMIR (INSULIN DETEMIR) [Concomitant]

REACTIONS (2)
  - Application site erythema [None]
  - Drug administered at inappropriate site [None]
